FAERS Safety Report 6483249-6 (Version None)
Quarter: 2009Q4

REPORT INFORMATION
  Report Type: 
  Country: None (occurrence: None)
  Receive Date: 20091208
  Receipt Date: 20091208
  Transmission Date: 20100525
  Serious: Yes (Hospitalization)
  Sender: FDA-Public Use
  Company Number: None

PATIENT
  Sex: Female
  Weight: 49.1 kg

DRUGS (2)
  1. CARBOPLATIN [Suspect]
     Dosage: 533 MG
     Dates: end: 20091028
  2. ETOPOSIDE [Suspect]
     Dosage: 150 MG
     Dates: end: 20091030

REACTIONS (4)
  - CHEST DISCOMFORT [None]
  - DYSPNOEA [None]
  - PALPITATIONS [None]
  - SWELLING [None]
